FAERS Safety Report 9265087 (Version 1)
Quarter: 2013Q2

REPORT INFORMATION
  Report Type: Spontaneous
  Country: AR (occurrence: AR)
  Receive Date: 20130501
  Receipt Date: 20130501
  Transmission Date: 20140414
  Serious: Yes (Other)
  Sender: FDA-Public Use
  Company Number: AR-US-EMD SERONO, INC.-7207878

PATIENT
  Sex: Male

DRUGS (1)
  1. REBIF [Suspect]
     Indication: PRODUCT USED FOR UNKNOWN INDICATION
     Dates: start: 200605

REACTIONS (7)
  - Muscle rupture [Not Recovered/Not Resolved]
  - Diplopia [Recovered/Resolved]
  - Urinary tract injury [Unknown]
  - Connective tissue disorder [Not Recovered/Not Resolved]
  - Conjunctival disorder [Unknown]
  - Infection [Unknown]
  - Inappropriate schedule of drug administration [Unknown]
